FAERS Safety Report 17175539 (Version 1)
Quarter: 2019Q4

REPORT INFORMATION
  Report Type: Report from Study
  Country: IN (occurrence: IN)
  Receive Date: 20191219
  Receipt Date: 20191219
  Transmission Date: 20200122
  Serious: Yes (Other)
  Sender: FDA-Public Use
  Company Number: PHHY2019IN006019

PATIENT
  Age: 34 Year
  Sex: Female
  Weight: 86 kg

DRUGS (4)
  1. NOVOMIX [Concomitant]
     Active Substance: INSULIN ASPART
     Indication: PRODUCT USED FOR UNKNOWN INDICATION
     Dosage: 2 DF, QD (20 U IN THE MORNING AND 10 UNITS AT THE NIGHT)
     Route: 065
  2. GALVUS MET [Suspect]
     Active Substance: METFORMIN HYDROCHLORIDE\VILDAGLIPTIN
     Indication: PRODUCT USED FOR UNKNOWN INDICATION
     Dosage: 1 DF (METFORMIN 500MG, VILDAGLIPTIN 50MG), BID
     Route: 048
     Dates: start: 2016, end: 20190406
  3. NOVOMIX [Concomitant]
     Active Substance: INSULIN ASPART
     Dosage: 50 MG (40 U IN MORNING 10 U IN EVENING) , UNK
     Route: 042
  4. ELIMINATE [Concomitant]
     Indication: PRODUCT USED FOR UNKNOWN INDICATION
     Dosage: 1 DF, QD (MORNING)
     Route: 048

REACTIONS (26)
  - Hypertension [Unknown]
  - Hyperglycaemia [Recovered/Resolved]
  - Pain [Unknown]
  - Dizziness [Unknown]
  - Stomach mass [Unknown]
  - Toothache [Unknown]
  - Stress [Unknown]
  - Blood glucose increased [Unknown]
  - Chest pain [Unknown]
  - Vomiting [Unknown]
  - Ulcer [Unknown]
  - Diarrhoea [Unknown]
  - Inflammation [Unknown]
  - Laryngeal oedema [Unknown]
  - Pyrexia [Not Recovered/Not Resolved]
  - Swelling [Unknown]
  - Impaired healing [Unknown]
  - Liver abscess [Unknown]
  - Nasopharyngitis [Unknown]
  - Oropharyngeal pain [Unknown]
  - Vitamin D deficiency [Unknown]
  - General physical health deterioration [Unknown]
  - Gastrointestinal motility disorder [Unknown]
  - Glycosylated haemoglobin increased [Unknown]
  - Abdominal abscess [Unknown]
  - Peripheral swelling [Unknown]

NARRATIVE: CASE EVENT DATE: 20181221
